FAERS Safety Report 17264435 (Version 1)
Quarter: 2020Q1

REPORT INFORMATION
  Report Type: Spontaneous
  Country: US (occurrence: US)
  Receive Date: 20200113
  Receipt Date: 20200113
  Transmission Date: 20200409
  Serious: Yes (Death)
  Sender: FDA-Public Use
  Company Number: US-BAYER-2020-003329

PATIENT
  Age: 48 Year
  Sex: Male

DRUGS (6)
  1. PAROXETINE. [Suspect]
     Active Substance: PAROXETINE
  2. METFORMIN [Suspect]
     Active Substance: METFORMIN HYDROCHLORIDE
     Route: 048
  3. SIMVASTATIN. [Suspect]
     Active Substance: SIMVASTATIN
  4. NORTRIPTYLINE [Suspect]
     Active Substance: NORTRIPTYLINE
  5. HYPOCHLORITE [Suspect]
     Active Substance: SODIUM HYPOCHLORITE
  6. ACETYLSALICYLIC ACID [Suspect]
     Active Substance: ASPIRIN
     Dosage: UNK
     Route: 048

REACTIONS (2)
  - Toxicity to various agents [Fatal]
  - Completed suicide [Fatal]
